FAERS Safety Report 21174912 (Version 1)
Quarter: 2022Q3

REPORT INFORMATION
  Report Type: Spontaneous
  Country: US (occurrence: None)
  Receive Date: 20220805
  Receipt Date: 20220805
  Transmission Date: 20221027
  Serious: No
  Sender: FDA-Public Use
  Company Number: US-ROCHE-3015022

PATIENT
  Age: 83 Year
  Sex: Female

DRUGS (1)
  1. BONIVA [Suspect]
     Active Substance: IBANDRONATE SODIUM
     Indication: Osteoporosis
     Dosage: ONGOING: UNKNOWN
     Route: 048
     Dates: start: 202012, end: 202102

REACTIONS (2)
  - Macular degeneration [Not Recovered/Not Resolved]
  - Dental caries [Unknown]

NARRATIVE: CASE EVENT DATE: 20210801
